FAERS Safety Report 6280181-8 (Version None)
Quarter: 2009Q3

REPORT INFORMATION
  Report Type: 
  Country: None (occurrence: None)
  Receive Date: 20090723
  Receipt Date: 20070605
  Transmission Date: 20100115
  Serious: Yes (Disabling, Other)
  Sender: FDA-Public Use
  Company Number: US-ASTRAZENECA-2006UW22709

PATIENT
  Age: 15106 Day
  Sex: Male
  Weight: 141.1 kg

DRUGS (10)
  1. SEROQUEL [Suspect]
     Indication: INSOMNIA
     Route: 048
     Dates: start: 20000110, end: 20040727
  2. SEROQUEL [Suspect]
     Indication: DEPRESSION
     Route: 048
     Dates: start: 20000110, end: 20040727
  3. HALDOL [Concomitant]
  4. TRILAFON [Concomitant]
  5. TOPAMAX [Concomitant]
     Dosage: 15-100 MG BID
     Route: 048
  6. WELLBUTRIN [Concomitant]
     Route: 048
  7. INDERAL [Concomitant]
     Route: 048
  8. NAPROXEN [Concomitant]
     Route: 048
  9. LIPITOR [Concomitant]
     Dosage: 10-20 MG
     Route: 048
  10. EFFEXOR [Concomitant]
     Route: 048

REACTIONS (2)
  - DIABETES MELLITUS [None]
  - DIABETIC NEUROPATHY [None]
